FAERS Safety Report 18285348 (Version 1)
Quarter: 2020Q3

REPORT INFORMATION
  Report Type: Spontaneous
  Country: US (occurrence: US)
  Receive Date: 20200918
  Receipt Date: 20200918
  Transmission Date: 20201103
  Serious: Yes (Other)
  Sender: FDA-Public Use
  Company Number: US-TEVA-2020-US-1829083

PATIENT
  Sex: Male

DRUGS (7)
  1. MS IR [Suspect]
     Active Substance: MORPHINE SULFATE
     Route: 065
  2. HYDROMORPHONE [Suspect]
     Active Substance: HYDROMORPHONE
     Route: 065
  3. MS CONTIN [Suspect]
     Active Substance: MORPHINE SULFATE
     Route: 065
  4. MORPHINE [Suspect]
     Active Substance: MORPHINE
     Route: 065
  5. TRAMADOL. [Suspect]
     Active Substance: TRAMADOL
     Route: 065
  6. OXYCODONE IMMEDIATE?RELEASE TABLETS [Suspect]
     Active Substance: OXYCODONE HYDROCHLORIDE
     Route: 065
  7. OXYCONTIN [Suspect]
     Active Substance: OXYCODONE HYDROCHLORIDE
     Route: 065

REACTIONS (2)
  - Overdose [Unknown]
  - Drug dependence [Unknown]
